FAERS Safety Report 21825533 (Version 3)
Quarter: 2024Q1

REPORT INFORMATION
  Report Type: Report from Study
  Country: US (occurrence: US)
  Receive Date: 20230105
  Receipt Date: 20240203
  Transmission Date: 20240410
  Serious: Yes (Death, Hospitalization, Other)
  Sender: FDA-Public Use
  Company Number: US-ACADIA PHARMACEUTICALS INC.-ACA-2022-PIM-004358

PATIENT
  Age: 81 Year
  Sex: Female

DRUGS (1)
  1. NUPLAZID [Suspect]
     Active Substance: PIMAVANSERIN TARTRATE
     Indication: Parkinson^s disease
     Dosage: 34 MILLIGRAM, QD
     Route: 048
     Dates: start: 20210210

REACTIONS (6)
  - Death [Fatal]
  - Urinary tract infection [Unknown]
  - Panic attack [Unknown]
  - Lip injury [Unknown]
  - Mouth injury [Unknown]
  - Fall [Unknown]

NARRATIVE: CASE EVENT DATE: 20221201
